FAERS Safety Report 4608550-X (Version None)
Quarter: 2005Q1

REPORT INFORMATION
  Report Type: 
  Country: None (occurrence: None)
  Receive Date: 20050315
  Receipt Date: 20050303
  Transmission Date: 20050727
  Serious: Yes (Death, Other)
  Sender: FDA-Public Use
  Company Number: JP-BRISTOL-MYERS SQUIBB COMPANY-12891164

PATIENT
  Age: 72 Year
  Sex: Male

DRUGS (3)
  1. ENDOXAN [Suspect]
     Indication: PLEURAL MESOTHELIOMA MALIGNANT
  2. DOXORUBICIN [Suspect]
     Indication: PLEURAL MESOTHELIOMA MALIGNANT
     Route: 048
  3. CISPLATIN [Suspect]
     Indication: PLEURAL MESOTHELIOMA MALIGNANT
     Route: 048

REACTIONS (4)
  - ANOREXIA [None]
  - ASTHENIA [None]
  - EMPYEMA [None]
  - PNEUMONIA [None]
